FAERS Safety Report 7808058-4 (Version None)
Quarter: 2011Q4

REPORT INFORMATION
  Report Type: 
  Country: None (occurrence: None)
  Receive Date: 20111011
  Receipt Date: 20111004
  Transmission Date: 20120403
  Serious: Yes (Other)
  Sender: FDA-Public Use
  Company Number: GB-BAXTER-2011BH031409

PATIENT
  Age: 4 Year
  Sex: Male

DRUGS (10)
  1. SODIUM CHLORIDE [Concomitant]
     Indication: PRODUCT USED FOR UNKNOWN INDICATION
     Route: 065
  2. SODIUM CHLORIDE 0.9% IN PLASTIC CONTAINER [Suspect]
     Indication: PROPHYLAXIS AGAINST DEHYDRATION
     Route: 065
  3. POTASSIUM CHLORIDE [Suspect]
     Indication: FLUID REPLACEMENT
     Route: 065
  4. GAVISCON [Suspect]
     Indication: PRODUCT USED FOR UNKNOWN INDICATION
     Route: 065
  5. VALPROATE SODIUM [Suspect]
     Indication: CONVULSION
     Route: 065
  6. GELATIN [Suspect]
     Indication: PRODUCT USED FOR UNKNOWN INDICATION
     Route: 065
  7. PEDIASURE [Suspect]
     Indication: MEDICAL DIET
     Route: 065
  8. ANTIBIOTICS [Concomitant]
     Indication: LOWER RESPIRATORY TRACT INFECTION
     Route: 065
  9. SODIUM CHLORIDE [Suspect]
     Indication: PROPHYLAXIS AGAINST DEHYDRATION
     Route: 065
  10. PHOSPHATE-SANDOZ [Suspect]
     Indication: PRODUCT USED FOR UNKNOWN INDICATION
     Route: 065

REACTIONS (2)
  - CONDITION AGGRAVATED [None]
  - HYPERNATRAEMIA [None]
